FAERS Safety Report 18048868 (Version 2)
Quarter: 2020Q3

REPORT INFORMATION
  Report Type: Spontaneous
  Country: US (occurrence: US)
  Receive Date: 20200721
  Receipt Date: 20200810
  Transmission Date: 20201103
  Serious: No
  Sender: FDA-Public Use
  Company Number: US-GLAXOSMITHKLINE-US2020131170

PATIENT
  Age: 65 Year
  Sex: Male

DRUGS (1)
  1. NUCALA [Suspect]
     Active Substance: MEPOLIZUMAB
     Indication: ASTHMA
     Dosage: UNK
     Route: 058
     Dates: start: 202003

REACTIONS (9)
  - Administration site pain [Unknown]
  - Product dose omission issue [Unknown]
  - Underdose [Unknown]
  - Condition aggravated [Unknown]
  - Asthma [Unknown]
  - Cough [Unknown]
  - Dyspnoea [Unknown]
  - Product complaint [Unknown]
  - Administration site bruise [Unknown]

NARRATIVE: CASE EVENT DATE: 20200607
